FAERS Safety Report 22361933 (Version 2)
Quarter: 2023Q2

REPORT INFORMATION
  Report Type: Spontaneous
  Country: TR (occurrence: TR)
  Receive Date: 20230524
  Receipt Date: 20230620
  Transmission Date: 20230721
  Serious: Yes (Hospitalization)
  Sender: FDA-Public Use
  Company Number: TR-AMERICAN REGENT INC-2023001174

PATIENT
  Age: 24 Year
  Sex: Female
  Weight: 71 kg

DRUGS (1)
  1. FERINJECT [Suspect]
     Active Substance: FERRIC CARBOXYMALTOSE
     Indication: Iron deficiency
     Dosage: 1000 MG (500 MG 1X2) DILUTED IN SERUM (WATER CONTAINING 0.9 PERCENT SALT (NACL)
     Dates: start: 20230426, end: 20230426

REACTIONS (4)
  - Heart rate decreased [Recovered/Resolved]
  - Maternal exposure during pregnancy [Unknown]
  - Drug hypersensitivity [Recovered/Resolved]
  - Incorrect product administration duration [Unknown]

NARRATIVE: CASE EVENT DATE: 20230426
